FAERS Safety Report 16544796 (Version 1)
Quarter: 2019Q3

REPORT INFORMATION
  Report Type: Spontaneous
  Country: US (occurrence: US)
  Receive Date: 20190528
  Receipt Date: 20190528
  Transmission Date: 20191004
  Serious: No
  Sender: FDA-Public Use
  Company Number: None

PATIENT
  Age: 52 Year
  Sex: Female

DRUGS (1)
  1. CAPECITABINE TAB 500 [Suspect]
     Active Substance: CAPECITABINE
     Route: 048
     Dates: start: 201904

REACTIONS (2)
  - Abdominal pain [None]
  - Dehydration [None]

NARRATIVE: CASE EVENT DATE: 20190528
